FAERS Safety Report 8962409 (Version 1)
Quarter: 2012Q4

REPORT INFORMATION
  Report Type: Spontaneous
  Country: US (occurrence: None)
  Receive Date: 20121206
  Receipt Date: 20121206
  Transmission Date: 20130627
  Serious: Yes (Other)
  Sender: FDA-Public Use
  Company Number: 2012MA013788

PATIENT
  Age: 60 Year
  Sex: Female
  Weight: 75.9 kg

DRUGS (2)
  1. IBUPROFEN [Suspect]
     Indication: PAIN
     Route: 048
     Dates: start: 20050124, end: 20050124
  2. IBUPROFEN [Suspect]
     Indication: ARTHRITIS
     Route: 048
     Dates: start: 20050124, end: 20050124

REACTIONS (4)
  - Dizziness [None]
  - Dysgeusia [None]
  - Pyrexia [None]
  - Nausea [None]
